FAERS Safety Report 25639618 (Version 1)
Quarter: 2025Q3

REPORT INFORMATION
  Report Type: Spontaneous
  Country: US (occurrence: US)
  Receive Date: 20250804
  Receipt Date: 20250804
  Transmission Date: 20251021
  Serious: Yes (Hospitalization, Other)
  Sender: AMGEN
  Company Number: US-AMGEN-USASP2025147844

PATIENT
  Sex: Female

DRUGS (2)
  1. PREDNISONE [Suspect]
     Active Substance: PREDNISONE
     Indication: Liver function test increased
     Route: 048
  2. Immunoglobulin [Concomitant]
     Dosage: 1 GRAM PER KILOGRAM, QWK
     Route: 040

REACTIONS (7)
  - Cholecystitis [Unknown]
  - Liver function test increased [Unknown]
  - Weight decreased [Unknown]
  - Premature delivery [Unknown]
  - Maternal exposure during pregnancy [Unknown]
  - Off label use [Unknown]
  - Drug effective for unapproved indication [Unknown]
